FAERS Safety Report 7218610-5 (Version None)
Quarter: 2011Q1

REPORT INFORMATION
  Report Type: 
  Country: None (occurrence: None)
  Receive Date: 20110110
  Receipt Date: 20101231
  Transmission Date: 20110831
  Serious: Yes (Death)
  Sender: FDA-Public Use
  Company Number: US-PFIZER INC-2011000271

PATIENT
  Age: 50 Year
  Sex: Male

DRUGS (4)
  1. ETHANOL [Suspect]
     Route: 048
  2. IBUPROFEN [Suspect]
     Route: 048
  3. ALPRAZOLAM [Suspect]
     Route: 048
  4. TRAMADOL [Suspect]
     Route: 048

REACTIONS (1)
  - ACCIDENTAL EXPOSURE [None]
